FAERS Safety Report 8188285-X (Version None)
Quarter: 2012Q1

REPORT INFORMATION
  Report Type: 
  Country: None (occurrence: None)
  Receive Date: 20120306
  Receipt Date: 20120223
  Transmission Date: 20120608
  Serious: Yes (Hospitalization)
  Sender: FDA-Public Use
  Company Number: JP-ELI_LILLY_AND_COMPANY-JP201202000449

PATIENT
  Sex: Male
  Weight: 48 kg

DRUGS (10)
  1. ZYRTEC [Concomitant]
     Dosage: 10 MG, UNK
  2. FORTEO [Suspect]
     Indication: OSTEOPOROSIS
     Dosage: 20 UG, UNK
     Route: 058
     Dates: start: 20120128, end: 20120128
  3. SIMVASTATIN [Concomitant]
     Dosage: 5 MG, UNK
  4. AMLODIPINE [Concomitant]
     Dosage: 2.5 MG, UNK
  5. HALCION [Concomitant]
     Dosage: 0.125 MG, UNK
     Route: 048
  6. URINORM [Concomitant]
     Dosage: 25 MG, UNK
  7. KIPRES                                  /JPN/ [Concomitant]
     Dosage: 10 MG, UNK
  8. STEROID ANTIBACTERIALS [Concomitant]
     Indication: ANALGESIC ASTHMA SYNDROME
     Dosage: UNK
     Route: 055
  9. DIOVAN [Concomitant]
     Dosage: 80 MG, UNK
  10. LANSOPRAZOLE [Concomitant]
     Dosage: 15 MG, UNK
     Route: 048

REACTIONS (3)
  - BRADYCARDIA [None]
  - ALTERED STATE OF CONSCIOUSNESS [None]
  - NAUSEA [None]
